FAERS Safety Report 7794454-0 (Version None)
Quarter: 2011Q4

REPORT INFORMATION
  Report Type: 
  Country: None (occurrence: None)
  Receive Date: 20111004
  Receipt Date: 20110928
  Transmission Date: 20120403
  Serious: Yes (Hospitalization)
  Sender: FDA-Public Use
  Company Number: US-BRISTOL-MYERS SQUIBB COMPANY-16115826

PATIENT
  Age: 25 Year
  Sex: Male
  Weight: 68 kg

DRUGS (3)
  1. ABILIFY [Suspect]
     Indication: BIPOLAR DISORDER
     Dosage: DOSE INCREASED TO 2.5MG PO QD, 5MG PO QD, 10MG PO QD, 20MG PO QD, THEN 20MG PO BID.
     Route: 048
  2. ABILIFY [Suspect]
     Indication: OPPOSITIONAL DEFIANT DISORDER
     Dosage: DOSE INCREASED TO 2.5MG PO QD, 5MG PO QD, 10MG PO QD, 20MG PO QD, THEN 20MG PO BID.
     Route: 048
  3. ABILIFY [Suspect]
     Indication: MOOD SWINGS
     Dosage: DOSE INCREASED TO 2.5MG PO QD, 5MG PO QD, 10MG PO QD, 20MG PO QD, THEN 20MG PO BID.
     Route: 048

REACTIONS (7)
  - PSYCHOTIC DISORDER [None]
  - AGITATION [None]
  - WITHDRAWAL SYNDROME [None]
  - WEIGHT INCREASED [None]
  - ANXIETY [None]
  - DYSKINESIA [None]
  - INSOMNIA [None]
